FAERS Safety Report 23732643 (Version 3)
Quarter: 2024Q2

REPORT INFORMATION
  Report Type: Spontaneous
  Country: US (occurrence: US)
  Receive Date: 20240411
  Receipt Date: 20240625
  Transmission Date: 20240716
  Serious: No
  Sender: FDA-Public Use
  Company Number: US-SA-SAC20240408000945

PATIENT
  Age: 66 Year
  Sex: Female

DRUGS (1)
  1. DUPIXENT [Suspect]
     Active Substance: DUPILUMAB
     Indication: Dermatitis allergic
     Dosage: 300 MG, QOW
     Route: 058

REACTIONS (8)
  - Ophthalmic migraine [Unknown]
  - Eczema [Unknown]
  - Erythema [Unknown]
  - Flushing [Unknown]
  - Pruritus [Unknown]
  - Dry skin [Unknown]
  - Dry eye [Unknown]
  - Drug ineffective [Unknown]
